FAERS Safety Report 8721992 (Version 3)
Quarter: 2013Q1

REPORT INFORMATION
  Report Type: Spontaneous
  Country: US (occurrence: US)
  Receive Date: 20120814
  Receipt Date: 20130104
  Transmission Date: 20140127
  Serious: Yes (Other)
  Sender: FDA-Public Use
  Company Number: US-PFIZER INC-2012194737

PATIENT
  Age: 57 Year
  Sex: Male
  Weight: 109 kg

DRUGS (9)
  1. LIPITOR [Suspect]
     Indication: BLOOD CHOLESTEROL ABNORMAL
     Dosage: 80 MG, DAILY
     Dates: start: 1999
  2. DEPAKOTE [Concomitant]
     Indication: MIGRAINE
     Dosage: UNK
  3. DILTIAZEM [Concomitant]
     Indication: HYPERTENSION
     Dosage: UNK
  4. URECHOLINE [Concomitant]
     Indication: BLADDER DISORDER
     Dosage: UNK
  5. LISINOPRIL [Concomitant]
     Indication: HYPERTENSION
     Dosage: UNK
  6. PROPECIA [Concomitant]
     Dosage: UNK
  7. CLONIDINE [Concomitant]
     Dosage: UNK
  8. WARFARIN [Concomitant]
     Dosage: UNK
  9. HYDROCHLOROTHIAZIDE [Concomitant]
     Dosage: UNK

REACTIONS (2)
  - Cerebrovascular accident [Unknown]
  - Amputation [Unknown]
